FAERS Safety Report 8844220 (Version 3)
Quarter: 2013Q4

REPORT INFORMATION
  Report Type: Report from Study
  Country: JP (occurrence: JP)
  Receive Date: 20121016
  Receipt Date: 20131230
  Transmission Date: 20140711
  Serious: Yes (Other)
  Sender: FDA-Public Use
  Company Number: JP-VERTEX PHARMACEUTICAL INC.-2012-022845

PATIENT
  Age: 59 Year
  Sex: Female

DRUGS (8)
  1. VX-950 (TELAPREVIR) [Suspect]
     Indication: CHRONIC HEPATITIS C
     Dosage: 2250 MG, QD
     Route: 048
     Dates: start: 20120417, end: 20120418
  2. VX-950 (TELAPREVIR) [Suspect]
     Dosage: 1500 MG, QD
     Route: 048
     Dates: start: 20120419, end: 20120708
  3. REBETOL [Suspect]
     Indication: CHRONIC HEPATITIS C
     Dosage: 600 MG, QD
     Route: 048
     Dates: start: 20120417, end: 20120430
  4. REBETOL [Suspect]
     Dosage: 200 MG, QD
     Route: 048
     Dates: start: 20120501, end: 20120927
  5. PEGINTERFERON ALFA-2B [Suspect]
     Indication: CHRONIC HEPATITIS C
     Dosage: 1.2 ?G/KG, QW
     Route: 058
     Dates: start: 20120417, end: 20120423
  6. PEGINTERFERON ALFA-2B [Suspect]
     Dosage: 0.9 ?G/KG, QW
     Route: 058
     Dates: start: 20120424
  7. PEGINTERFERON ALFA-2B [Suspect]
     Dosage: 0.92 ?G/KG, QW
     Route: 058
  8. ALLEGRA [Concomitant]
     Dosage: 120 MG, QD
     Route: 048
     Dates: end: 20120708

REACTIONS (1)
  - Retinal haemorrhage [Recovered/Resolved]
